FAERS Safety Report 11986278 (Version 1)
Quarter: 2016Q1

REPORT INFORMATION
  Report Type: Spontaneous
  Country: ES (occurrence: ES)
  Receive Date: 20160202
  Receipt Date: 20160202
  Transmission Date: 20160526
  Serious: Yes (Hospitalization)
  Sender: FDA-Public Use
  Company Number: ES-ROCHE-1702838

PATIENT
  Age: 70 Year
  Sex: Male
  Weight: 98 kg

DRUGS (6)
  1. ALOPURINOL [Concomitant]
     Active Substance: ALLOPURINOL
     Indication: HYPERURICAEMIA
     Route: 048
     Dates: start: 20120813
  2. ULTIBRO BREEZHALER [Concomitant]
     Active Substance: GLYCOPYRRONIUM\INDACATEROL
     Indication: INTERSTITIAL LUNG DISEASE
     Route: 055
     Dates: start: 20141014
  3. ACETILCISTEINA [Concomitant]
     Active Substance: ACETYLCYSTEINE
     Indication: INTERSTITIAL LUNG DISEASE
     Route: 048
     Dates: start: 20151208
  4. ESBRIET [Suspect]
     Active Substance: PIRFENIDONE
     Indication: PRODUCT USED FOR UNKNOWN INDICATION
     Route: 048
     Dates: start: 20150119
  5. PREVNAR 13 [Suspect]
     Active Substance: PNEUMOCOCCAL 13-VALENT CONJUGATE VACCINE
     Indication: IDIOPATHIC PULMONARY FIBROSIS
     Dosage: SEROTYPE 1 CAPSULAR POLYSACCHARIDE PNEUMOCOCCAL?ANTIGEN, SEROTYPE 14 CAPSULAR POLYSACCHARIDE PNEUMOC
     Route: 030
     Dates: start: 20151130, end: 20151130
  6. ATORVASTATINA [Concomitant]
     Active Substance: ATORVASTATIN
     Route: 048
     Dates: start: 20120813

REACTIONS (1)
  - Bronchitis [Recovered/Resolved]

NARRATIVE: CASE EVENT DATE: 20151208
